FAERS Safety Report 16834269 (Version 1)
Quarter: 2019Q3

REPORT INFORMATION
  Report Type: Spontaneous
  Country: GR (occurrence: GR)
  Receive Date: 20190920
  Receipt Date: 20190920
  Transmission Date: 20191005
  Serious: Yes (Other)
  Sender: FDA-Public Use
  Company Number: PHHY2019GR217570

PATIENT
  Sex: Male

DRUGS (2)
  1. ADALIMUMAB [Suspect]
     Active Substance: ADALIMUMAB
     Indication: CROHN^S DISEASE
     Dosage: UNK
     Route: 065
  2. INFLIXIMAB [Suspect]
     Active Substance: INFLIXIMAB
     Indication: CROHN^S DISEASE
     Dosage: UNK
     Route: 065

REACTIONS (4)
  - Microangiopathy [Unknown]
  - Neurological symptom [Unknown]
  - White matter lesion [Unknown]
  - Demyelination [Unknown]
